FAERS Safety Report 4603916-6 (Version None)
Quarter: 2005Q1

REPORT INFORMATION
  Report Type: 
  Country: None (occurrence: None)
  Receive Date: 20050310
  Receipt Date: 20050224
  Transmission Date: 20050727
  Serious: Yes (Hospitalization, Disabling)
  Sender: FDA-Public Use
  Company Number: FR-ROCHE-396800

PATIENT
  Sex: Female

DRUGS (1)
  1. PEGASYS [Suspect]
     Indication: HEPATITIS C
     Route: 058
     Dates: start: 20050115

REACTIONS (4)
  - ACUTE MYELOID LEUKAEMIA [None]
  - C-REACTIVE PROTEIN INCREASED [None]
  - LEUKAEMIA [None]
  - LUNG DISORDER [None]
